FAERS Safety Report 8176262-4 (Version None)
Quarter: 2012Q1

REPORT INFORMATION
  Report Type: 
  Country: None (occurrence: None)
  Receive Date: 20120301
  Receipt Date: 20120227
  Transmission Date: 20120608
  Serious: Yes (Death, Hospitalization)
  Sender: FDA-Public Use
  Company Number: US-JNJFOC-20120113522

PATIENT
  Age: 80 Year
  Sex: Female

DRUGS (3)
  1. PLAVIX [Concomitant]
  2. XARELTO [Suspect]
     Indication: ILL-DEFINED DISORDER
  3. ASPIRIN [Concomitant]

REACTIONS (2)
  - HAEMOGLOBIN DECREASED [None]
  - DEATH [None]
